FAERS Safety Report 6301646-6 (Version None)
Quarter: 2009Q3

REPORT INFORMATION
  Report Type: 
  Country: None (occurrence: None)
  Receive Date: 20090807
  Receipt Date: 20090728
  Transmission Date: 20100115
  Serious: Yes (Hospitalization)
  Sender: FDA-Public Use
  Company Number: PHHY2009MX31910

PATIENT
  Sex: Female

DRUGS (2)
  1. EXFORGE [Suspect]
     Dosage: 2 DF (160/5 MG) PER DAY
     Dates: start: 20090101
  2. RASILEZ [Suspect]
     Dosage: 1 DF (150 MG) PER DAY
     Dates: start: 20090501

REACTIONS (1)
  - HYPERTENSIVE CRISIS [None]
